FAERS Safety Report 19565543 (Version 2)
Quarter: 2021Q3

REPORT INFORMATION
  Report Type: Spontaneous
  Country: US (occurrence: US)
  Receive Date: 20210715
  Receipt Date: 20210716
  Transmission Date: 20211014
  Serious: Yes (Other)
  Sender: FDA-Public Use
  Company Number: US-ASTRAZENECA-2021A608344

PATIENT
  Age: 56 Year
  Sex: Female
  Weight: 122.9 kg

DRUGS (40)
  1. PREVPAC [Suspect]
     Active Substance: AMOXICILLIN\CLARITHROMYCIN\LANSOPRAZOLE
     Indication: DYSPEPSIA
     Route: 065
     Dates: start: 2001
  2. PREVACID [Suspect]
     Active Substance: LANSOPRAZOLE
     Indication: DYSPEPSIA
     Route: 065
     Dates: start: 2001, end: 2010
  3. DIAZEPAM. [Concomitant]
     Active Substance: DIAZEPAM
     Indication: ANXIETY
     Dates: start: 2012, end: 2015
  4. SIMVASTATIN. [Concomitant]
     Active Substance: SIMVASTATIN
     Indication: RENAL DISORDER
     Dates: start: 2011
  5. OMEGA 3 [Concomitant]
     Active Substance: OMEGA-3 FATTY ACIDS
     Indication: CARDIAC DISORDER
     Dates: start: 2011
  6. FAMOTIDINE. [Concomitant]
     Active Substance: FAMOTIDINE
     Dates: start: 2011
  7. CYMBALTA [Concomitant]
     Active Substance: DULOXETINE HYDROCHLORIDE
     Dates: start: 2011
  8. LORAZEPAM. [Concomitant]
     Active Substance: LORAZEPAM
     Dates: start: 2011
  9. HYDROC/APAP [Concomitant]
     Dates: start: 2011
  10. LEVOFLOXACINE [Concomitant]
     Active Substance: LEVOFLOXACIN
     Dates: start: 2011
  11. DEXILANT [Suspect]
     Active Substance: DEXLANSOPRAZOLE
     Indication: DYSPEPSIA
     Route: 065
     Dates: start: 2011
  12. ALBUTEROL. [Concomitant]
     Active Substance: ALBUTEROL
     Indication: COUGH
     Dates: start: 2005, end: 2011
  13. GABAPENTIN. [Concomitant]
     Active Substance: GABAPENTIN
     Indication: PAIN
     Dates: start: 2012
  14. SIMVASTATIN. [Concomitant]
     Active Substance: SIMVASTATIN
     Indication: RENAL DISORDER
     Dates: start: 2011
  15. METOCLOPRAMIDE. [Concomitant]
     Active Substance: METOCLOPRAMIDE
     Dates: start: 2011
  16. BENZTROPINE. [Concomitant]
     Active Substance: BENZTROPINE
     Dates: start: 2011
  17. CLONAZEPAM. [Concomitant]
     Active Substance: CLONAZEPAM
     Indication: ANXIETY
     Dates: start: 2012, end: 2012
  18. TRAMADOL. [Concomitant]
     Active Substance: TRAMADOL
     Indication: PAIN
     Dates: start: 2011, end: 2016
  19. NAPROXEN. [Concomitant]
     Active Substance: NAPROXEN
     Indication: PAIN
     Dates: start: 2011
  20. NOVOLOG [Concomitant]
     Active Substance: INSULIN ASPART
     Indication: BLOOD INSULIN
     Dates: start: 2010, end: 2013
  21. SIMVASTATIN. [Concomitant]
     Active Substance: SIMVASTATIN
     Indication: RENAL DISORDER
     Dates: start: 2011
  22. MILK OF MAGNESIA [Concomitant]
     Active Substance: MAGNESIUM HYDROXIDE
     Indication: VITAL CAPACITY
     Dates: start: 2003
  23. METAMUCIL [Concomitant]
     Active Substance: PLANTAGO SEED
     Indication: CONSTIPATION
     Dates: start: 2003
  24. FLEXERIL [Concomitant]
     Active Substance: CYCLOBENZAPRINE HYDROCHLORIDE
     Dates: start: 2011
  25. ENALAPRIL [Concomitant]
     Active Substance: ENALAPRIL
     Dates: start: 2011
  26. GLIPIZIDE. [Concomitant]
     Active Substance: GLIPIZIDE
     Dates: start: 2011
  27. DOCUSATE SODIUM. [Concomitant]
     Active Substance: DOCUSATE SODIUM
     Dates: start: 2011
  28. FUROSEMIDE. [Concomitant]
     Active Substance: FUROSEMIDE
     Indication: DIURETIC THERAPY
     Dates: start: 2011
  29. HALOPERIDOL. [Concomitant]
     Active Substance: HALOPERIDOL
     Dates: start: 2011
  30. OMEPRAZOLE. [Suspect]
     Active Substance: OMEPRAZOLE
     Indication: DYSPEPSIA
     Route: 065
     Dates: start: 2015
  31. DOXEPIN [Concomitant]
     Active Substance: DOXEPIN
     Dates: start: 2011, end: 2015
  32. AMLODIPINE [Concomitant]
     Active Substance: AMLODIPINE BESYLATE
     Indication: HYPERTENSION
     Dates: start: 2014, end: 2015
  33. PEPCID [Concomitant]
     Active Substance: FAMOTIDINE
  34. TAGAMET [Concomitant]
     Active Substance: CIMETIDINE
     Dates: start: 2001
  35. DOXEPIN [Concomitant]
     Active Substance: DOXEPIN
     Dates: start: 2011
  36. LIDOCAINE. [Concomitant]
     Active Substance: LIDOCAINE
     Dates: start: 2011
  37. PRISTIQ EXTENDED?RELEASE [Concomitant]
     Active Substance: DESVENLAFAXINE SUCCINATE
     Indication: DEPRESSION
     Dates: start: 2011, end: 2013
  38. SIMVASTATIN. [Concomitant]
     Active Substance: SIMVASTATIN
     Indication: RENAL DISORDER
     Dates: start: 2011
  39. LEVEMIR [Concomitant]
     Active Substance: INSULIN DETEMIR
     Indication: DIABETES MELLITUS
     Dates: start: 2010, end: 2013
  40. RANITIDINE. [Concomitant]
     Active Substance: RANITIDINE
     Dates: start: 2015, end: 2016

REACTIONS (4)
  - Acute kidney injury [Not Recovered/Not Resolved]
  - End stage renal disease [Not Recovered/Not Resolved]
  - Chronic kidney disease [Not Recovered/Not Resolved]
  - Renal failure [Not Recovered/Not Resolved]

NARRATIVE: CASE EVENT DATE: 2008
